FAERS Safety Report 7933919-5 (Version None)
Quarter: 2011Q4

REPORT INFORMATION
  Report Type: 
  Country: None (occurrence: None)
  Receive Date: 20111122
  Receipt Date: 20111107
  Transmission Date: 20120403
  Serious: Yes (Other)
  Sender: FDA-Public Use
  Company Number: US-ROCHE-315476

PATIENT
  Age: 39 Year
  Sex: Female
  Weight: 81 kg

DRUGS (6)
  1. PACLITAXEL [Suspect]
     Indication: BREAST CANCER
     Dosage: OVER 3 HR Q 21D STARTING DAY 1 OF WK 13, X 4.
     Route: 042
     Dates: start: 20001201, end: 20010401
  2. HERCEPTIN [Suspect]
     Route: 042
     Dates: start: 20001201, end: 20001201
  3. DOXORUBICIN HCL [Suspect]
     Indication: BREAST CANCER
     Dosage: ON DAY 1 Q21 DAYS, X 4
     Route: 042
     Dates: start: 20000828, end: 20001201
  4. CYCLOPHOSPHAMIDE [Suspect]
     Indication: BREAST CANCER
     Dosage: OVER 30 MIN, ON DAY 1 Q21 DAY, X 4
     Route: 042
     Dates: start: 20000828, end: 20001201
  5. TAMOXIFEN CITRATE [Concomitant]
     Indication: BREAST CANCER
     Dosage: STARTING ON DAY 1 X 5 YEARS.
     Route: 048
  6. HERCEPTIN [Suspect]
     Indication: BREAST CANCER
     Dosage: MAINTENANCE DOSE,OVER 30 MIN QWK  FOR 51WKS STARTING DAY 1 OF WK 14.
     Route: 042
     Dates: start: 20001201, end: 20011217

REACTIONS (3)
  - SYNCOPE [None]
  - LEUKOENCEPHALOPATHY [None]
  - PERIPHERAL SENSORY NEUROPATHY [None]
